FAERS Safety Report 4480084-5 (Version None)
Quarter: 2004Q3

REPORT INFORMATION
  Report Type: 
  Country: None (occurrence: None)
  Receive Date: 20040923
  Receipt Date: 20040608
  Transmission Date: 20050211
  Serious: No
  Sender: FDA-Public Use
  Company Number: USA040669537

PATIENT
  Age: 78 Year
  Sex: Female
  Weight: 77 kg

DRUGS (4)
  1. FORTEO [Suspect]
     Indication: OSTEOPOROSIS
     Dosage: 20 UG/1 DAY
     Dates: start: 20040604
  2. COUMADIN [Concomitant]
  3. CALTRATE 600 PLUS VITAMIN D [Concomitant]
  4. ACTONEL [Concomitant]

REACTIONS (1)
  - INJECTION SITE HAEMORRHAGE [None]
